FAERS Safety Report 21955966 (Version 2)
Quarter: 2023Q1

REPORT INFORMATION
  Report Type: Report from Study
  Country: FR (occurrence: FR)
  Receive Date: 20230206
  Receipt Date: 20230209
  Transmission Date: 20230417
  Serious: Yes (Life-Threatening, Other)
  Sender: FDA-Public Use
  Company Number: FR-002147023-NVSC2022FR250499

PATIENT
  Sex: Male
  Weight: 78 kg

DRUGS (6)
  1. PLUVICTO [Suspect]
     Active Substance: LUTETIUM LU-177 VIPIVOTIDE TETRAXETAN
     Indication: Hormone-refractory prostate cancer
     Dosage: 7298 MBQ, ONCE
     Route: 042
     Dates: start: 20220721, end: 20220721
  2. PLUVICTO [Suspect]
     Active Substance: LUTETIUM LU-177 VIPIVOTIDE TETRAXETAN
     Dosage: 6486 MBQ, ONCE
     Route: 042
     Dates: start: 20220829, end: 20220829
  3. PLUVICTO [Suspect]
     Active Substance: LUTETIUM LU-177 VIPIVOTIDE TETRAXETAN
     Dosage: 6822 MBQ, ONCE
     Route: 042
     Dates: start: 20221013, end: 20221013
  4. PLUVICTO [Suspect]
     Active Substance: LUTETIUM LU-177 VIPIVOTIDE TETRAXETAN
     Dosage: 5566 MBQ, ONCE (CYCLE 4)
     Route: 042
     Dates: start: 20221124, end: 20221124
  5. PLUVICTO [Suspect]
     Active Substance: LUTETIUM LU-177 VIPIVOTIDE TETRAXETAN
     Dosage: 5709 MBQ, ONCE (CYCLE 5)
     Route: 042
     Dates: start: 20230105, end: 20230105
  6. APALUTAMIDE [Concomitant]
     Active Substance: APALUTAMIDE
     Indication: Prostate cancer
     Dosage: 160 MG, QD
     Route: 065
     Dates: start: 202206

REACTIONS (9)
  - Thrombocytopenia [Not Recovered/Not Resolved]
  - Anaemia [Not Recovered/Not Resolved]
  - Leukopenia [Not Recovered/Not Resolved]
  - Neutropenia [Unknown]
  - Asthenia [Not Recovered/Not Resolved]
  - Ageusia [Not Recovered/Not Resolved]
  - Underdose [Unknown]
  - Dry mouth [Not Recovered/Not Resolved]
  - General physical health deterioration [Unknown]

NARRATIVE: CASE EVENT DATE: 20220808
